FAERS Safety Report 7343129-0 (Version None)
Quarter: 2011Q1

REPORT INFORMATION
  Report Type: 
  Country: None (occurrence: None)
  Receive Date: 20110310
  Receipt Date: 20110308
  Transmission Date: 20110831
  Serious: No
  Sender: FDA-Public Use
  Company Number: US-PFIZER INC-2011050158

PATIENT
  Sex: Male

DRUGS (1)
  1. LYRICA [Suspect]
     Dosage: 50 MG DAILY
     Route: 048

REACTIONS (3)
  - DEPRESSION [None]
  - ANXIETY [None]
  - IRRITABILITY [None]
